FAERS Safety Report 16597447 (Version 1)
Quarter: 2019Q3

REPORT INFORMATION
  Report Type: Spontaneous
  Country: US (occurrence: US)
  Receive Date: 20190719
  Receipt Date: 20190719
  Transmission Date: 20191004
  Serious: No
  Sender: FDA-Public Use
  Company Number: US-PFIZER INC-2019307556

PATIENT
  Age: 55 Year
  Sex: Male
  Weight: 77.11 kg

DRUGS (2)
  1. NEURONTIN [Suspect]
     Active Substance: GABAPENTIN
     Dosage: UNK UNK, 4X/DAY (1500 MG A DAY)
  2. GABAPENTIN. [Suspect]
     Active Substance: GABAPENTIN
     Dosage: UNK UNK, 4X/DAY (1500 MG A DAY)

REACTIONS (1)
  - Drug ineffective [Unknown]
